FAERS Safety Report 6713446-3 (Version None)
Quarter: 2010Q2

REPORT INFORMATION
  Report Type: 
  Country: None (occurrence: None)
  Receive Date: 20100506
  Receipt Date: 20100430
  Transmission Date: 20101027
  Serious: Yes (Hospitalization)
  Sender: FDA-Public Use
  Company Number: US-RB-023005-09

PATIENT
  Age: 35 Year
  Sex: Female

DRUGS (2)
  1. SUBUTEX [Suspect]
     Route: 065
     Dates: start: 20090801
  2. SUBOXONE [Suspect]
     Route: 065
     Dates: start: 20090101, end: 20090801

REACTIONS (3)
  - CHEST PAIN [None]
  - DRUG EXPOSURE DURING PREGNANCY [None]
  - HYPERTENSION [None]
